FAERS Safety Report 11195415 (Version 1)
Quarter: 2015Q2

REPORT INFORMATION
  Report Type: Spontaneous
  Country: JP (occurrence: JP)
  Receive Date: 20150617
  Receipt Date: 20150617
  Transmission Date: 20150821
  Serious: No
  Sender: FDA-Public Use
  Company Number: JP-JNJFOC-20150607639

PATIENT

DRUGS (1)
  1. DUROTEP MT PATCH [Suspect]
     Active Substance: FENTANYL
     Indication: CANCER PAIN
     Route: 062

REACTIONS (2)
  - Treatment noncompliance [Unknown]
  - Incorrect drug administration duration [Unknown]
